FAERS Safety Report 8581054-8 (Version None)
Quarter: 2012Q3

REPORT INFORMATION
  Report Type: 
  Country: None (occurrence: None)
  Receive Date: 20120809
  Receipt Date: 20120731
  Transmission Date: 20120928
  Serious: Yes (Disabling, Other)
  Sender: FDA-Public Use
  Company Number: US-BAYER-201026404NA

PATIENT
  Age: 18 Year
  Sex: Female
  Weight: 88.435 kg

DRUGS (4)
  1. TOPAMAX [Concomitant]
     Indication: MIGRAINE
     Dosage: 25 MG, BID
     Dates: start: 20050301
  2. YAZ [Suspect]
     Indication: HORMONE LEVEL ABNORMAL
     Dosage: UNK
     Route: 048
     Dates: start: 20040101
  3. YASMIN [Suspect]
     Indication: HORMONE LEVEL ABNORMAL
  4. YASMIN [Suspect]
     Indication: HYPERTRICHOSIS
     Dosage: UNK
     Route: 048
     Dates: start: 20040101, end: 20050601

REACTIONS (6)
  - CEREBROVASCULAR ACCIDENT [None]
  - HEMIPARESIS [None]
  - POST STROKE DEPRESSION [None]
  - PROTEIN S DEFICIENCY [None]
  - VIITH NERVE PARALYSIS [None]
  - EYE MOVEMENT DISORDER [None]
